FAERS Safety Report 16469637 (Version 1)
Quarter: 2019Q3

REPORT INFORMATION
  Report Type: Spontaneous
  Country: US (occurrence: US)
  Receive Date: 20190623
  Receipt Date: 20190623
  Transmission Date: 20191004
  Serious: Yes (Other)
  Sender: FDA-Public Use
  Company Number: None

PATIENT
  Age: 41 Year
  Sex: Female
  Weight: 73.35 kg

DRUGS (1)
  1. REXALL SINUS NASAL PUMP MIST [Suspect]
     Active Substance: OXYMETAZOLINE HYDROCHLORIDE
     Indication: HYPERSENSITIVITY
     Dosage: ?          QUANTITY:1 SPRAY(S);?
     Route: 055
     Dates: start: 20190623, end: 20190623

REACTIONS (3)
  - Headache [None]
  - Nasal discomfort [None]
  - Product quality issue [None]

NARRATIVE: CASE EVENT DATE: 20190623
